FAERS Safety Report 9112846 (Version 2)
Quarter: 2013Q1

REPORT INFORMATION
  Report Type: Spontaneous
  Country: US (occurrence: US)
  Receive Date: 20130211
  Receipt Date: 20130228
  Transmission Date: 20140127
  Serious: No
  Sender: FDA-Public Use
  Company Number: US-PFIZER INC-2013049685

PATIENT
  Sex: 0

DRUGS (2)
  1. SUTENT [Suspect]
     Indication: THYROID CANCER METASTATIC
     Dosage: 37.5 MG, 1X/DAY
     Route: 048
  2. SUTENT [Suspect]
     Dosage: 12.5 MG, 3X/DAY
     Route: 048

REACTIONS (3)
  - Off label use [Unknown]
  - Disease progression [Unknown]
  - Thyroid cancer metastatic [Unknown]
